FAERS Safety Report 11062574 (Version 5)
Quarter: 2015Q3

REPORT INFORMATION
  Report Type: Spontaneous
  Country: JP (occurrence: JP)
  Receive Date: 20150424
  Receipt Date: 20150817
  Transmission Date: 20151125
  Serious: Yes (Hospitalization)
  Sender: FDA-Public Use
  Company Number: JP-009507513-1504JPN021010

PATIENT
  Age: 48 Year
  Sex: Male
  Weight: 69 kg

DRUGS (1)
  1. STROMECTOL [Suspect]
     Active Substance: IVERMECTIN
     Indication: ACARODERMATITIS
     Dosage: 15 MG, QD
     Route: 048
     Dates: start: 20150414, end: 20150414

REACTIONS (3)
  - Dehydration [Recovered/Resolved]
  - Erythema multiforme [Recovered/Resolved]
  - Lymphocyte morphology abnormal [Recovered/Resolved]

NARRATIVE: CASE EVENT DATE: 201504
